FAERS Safety Report 21683495 (Version 2)
Quarter: 2023Q2

REPORT INFORMATION
  Report Type: Report from Study
  Country: GB (occurrence: GB)
  Receive Date: 20221205
  Receipt Date: 20230421
  Transmission Date: 20230722
  Serious: Yes (Hospitalization)
  Sender: FDA-Public Use
  Company Number: GB-ROCHE-1609476

PATIENT
  Age: 50 Year
  Sex: Female

DRUGS (28)
  1. DOCETAXEL [Suspect]
     Active Substance: DOCETAXEL
     Indication: Breast cancer metastatic
     Dosage: UNIT DOSE : 130 MG, FREQUENCY ; 1 , FREQUENCY TIME : 3 WEEKS, THERAPY DURATION : 130 DAYS
     Route: 042
     Dates: start: 20150630, end: 20151106
  2. PERTUZUMAB [Suspect]
     Active Substance: PERTUZUMAB
     Indication: Breast cancer metastatic
     Dosage: UNIT DOSE : 840 MG, FREQUENCY ;1  , FREQUENCY TIME : 3 WEEKS, THERAPY END DATE : NASK
     Route: 042
     Dates: start: 20150629
  3. TRASTUZUMAB [Suspect]
     Active Substance: TRASTUZUMAB
     Indication: Breast cancer metastatic
     Dosage: UNIT DOSE : 600 MG, FREQUENCY ; 1 , FREQUENCY TIME : 3 WEEKS, THERAPY END DATE : NASK
     Route: 058
     Dates: start: 20150629
  4. DIAZEPAM [Concomitant]
     Active Substance: DIAZEPAM
     Indication: Product used for unknown indication
     Dosage: 4 MILLIGRAM DAILY;  UNIT DOSE : 4 MG, FREQUENCY ; 1 , FREQUENCY TIME : 1 DAYS, THERAPY DURATION : 3
     Route: 048
     Dates: start: 201709, end: 201712
  5. DIAZEPAM [Concomitant]
     Active Substance: DIAZEPAM
     Dosage: 6.5 MILLIGRAM DAILY;  UNIT DOSE : 6.5 MG, FREQUENCY ; 1 , FREQUENCY TIME : 1 DAYS, THERAPY DURATION
     Route: 048
     Dates: start: 201612, end: 201712
  6. DIAZEPAM [Concomitant]
     Active Substance: DIAZEPAM
     Dosage: 3.5 MILLIGRAM DAILY;  UNIT DOSE : 3.5 MG, FREQUENCY ; 1 , FREQUENCY TIME : 1 DAYS
     Route: 048
     Dates: start: 201712
  7. LIOTHYRONINE [Concomitant]
     Active Substance: LIOTHYRONINE
     Indication: Product used for unknown indication
     Dosage: 10 MILLIGRAM DAILY;  UNIT DOSE : 10 MG, FREQUENCY ; 1 , FREQUENCY TIME : 1 DAYS,
     Route: 048
     Dates: start: 20160927
  8. LITHIUM [Concomitant]
     Active Substance: LITHIUM
     Indication: Product used for unknown indication
     Dosage: 400 MILLIGRAM DAILY;  UNIT DOSE : 400 MG, FREQUENCY ; 1 , FREQUENCY TIME : 1 DAYS, THERAPY DURATION
     Route: 048
     Dates: start: 20161202, end: 201709
  9. LITHIUM [Concomitant]
     Active Substance: LITHIUM
     Dosage: 400 MILLIGRAM DAILY;  UNIT DOSE : 400 MG, FREQUENCY ; 1 , FREQUENCY TIME : 1 DAYS, THERAPY DURATION
     Route: 048
     Dates: start: 201712, end: 20181222
  10. LITHIUM [Concomitant]
     Active Substance: LITHIUM
     Dosage: 250 MILLIGRAM DAILY;  UNIT DOSE : 250 MG, FREQUENCY ; 1 , FREQUENCY TIME : 1 DAYS, THERAPY DURATION
     Route: 048
     Dates: start: 20181223, end: 20190312
  11. LITHIUM [Concomitant]
     Active Substance: LITHIUM
     Dosage: 150 MILLIGRAM DAILY;  UNIT DOSE : 150 MG, FREQUENCY ; 1 , FREQUENCY TIME : 1 DAYS
     Route: 048
     Dates: start: 20190313
  12. LITHIUM [Concomitant]
     Active Substance: LITHIUM
     Dosage: 500 MILLIGRAM DAILY;  UNIT DOSE : 500 MG, FREQUENCY ; 1 , FREQUENCY TIME : 1 DAYS, THERAPY DURATION
     Route: 048
     Dates: start: 201709, end: 201712
  13. MIRTAZAPINE [Concomitant]
     Active Substance: MIRTAZAPINE
     Indication: Product used for unknown indication
     Dosage: 15 MILLIGRAM DAILY;  UNIT DOSE : 15 MG, FREQUENCY ; 1 , FREQUENCY TIME : 1 DAYS, THERAPY DURATION :
     Route: 048
     Dates: start: 20160716, end: 201612
  14. MIRTAZAPINE [Concomitant]
     Active Substance: MIRTAZAPINE
     Dosage: 7.5 MILLIGRAM DAILY;  UNIT DOSE : 7.5 MG, FREQUENCY ; 1 , FREQUENCY TIME : 1 DAYS, THERAPY DURATION
     Route: 048
     Dates: start: 201712, end: 201803
  15. MIRTAZAPINE [Concomitant]
     Active Substance: MIRTAZAPINE
     Dosage: 3.75 MILLIGRAM DAILY;  UNIT DOSE : 3.75 MG, FREQUENCY ; 1 , FREQUENCY TIME : 1 DAYS, THERAPY DURATIO
     Route: 048
     Dates: start: 201803, end: 201807
  16. MIRTAZAPINE [Concomitant]
     Active Substance: MIRTAZAPINE
     Dosage: 15 MILLIGRAM DAILY;  UNIT DOSE : 15 MG, FREQUENCY ; 1 , FREQUENCY TIME : 1 DAYS, THERAPY DURATION :
     Route: 048
     Dates: start: 201709, end: 201712
  17. MIRTAZAPINE [Concomitant]
     Active Substance: MIRTAZAPINE
     Dosage: 30 MILLIGRAM DAILY;  UNIT DOSE : 30 MG, FREQUENCY ; 1 , FREQUENCY TIME : 1 DAYS, THERAPY DURATION :
     Route: 048
     Dates: start: 2016, end: 20160715
  18. MIRTAZAPINE [Concomitant]
     Active Substance: MIRTAZAPINE
     Dosage: 30 MILLIGRAM DAILY;  UNIT DOSE : 30 MG, FREQUENCY ; 1 , FREQUENCY TIME : 1 DAYS, THERAPY DURATION :
     Route: 048
     Dates: start: 201612, end: 201803
  19. MIRTAZAPINE [Concomitant]
     Active Substance: MIRTAZAPINE
     Dosage: 15 MILLIGRAM DAILY;  UNIT DOSE : 15 MG, FREQUENCY ; 1 , FREQUENCY TIME : 1 DAYS
     Route: 048
     Dates: end: 2016
  20. PYRIDOXINE [Concomitant]
     Active Substance: PYRIDOXINE
     Indication: Neuropathy peripheral
     Dosage: 150 MILLIGRAM DAILY;  UNIT DOSE : 50 MG, FREQUENCY ; 3 , FREQUENCY TIME : 1 DAYS
     Route: 048
     Dates: start: 20150807
  21. SERTRALINE [Concomitant]
     Active Substance: SERTRALINE HYDROCHLORIDE
     Indication: Product used for unknown indication
     Dosage: 50 MILLIGRAM DAILY;  UNIT DOSE : 50 MG, FREQUENCY ; 1 , FREQUENCY TIME : 1 DAYS, THERAPY DURATION :2
     Route: 048
     Dates: start: 201709, end: 201711
  22. SERTRALINE [Concomitant]
     Active Substance: SERTRALINE HYDROCHLORIDE
     Dosage: 62.5 MILLIGRAM DAILY;  UNIT DOSE : 62.5 MG, FREQUENCY ; 1 , FREQUENCY TIME : 1 DAYS, THERAPY DURATIO
     Route: 048
     Dates: start: 201702, end: 201709
  23. SERTRALINE [Concomitant]
     Active Substance: SERTRALINE HYDROCHLORIDE
     Dosage: 12.5 MILLIGRAM DAILY;  UNIT DOSE : 12.5 MG, FREQUENCY ; 1 , FREQUENCY TIME : 1 DAYS, THERAPY DURATIO
     Route: 048
     Dates: start: 201712, end: 201803
  24. SERTRALINE [Concomitant]
     Active Substance: SERTRALINE HYDROCHLORIDE
     Dosage: 37.5 MILLIGRAM DAILY;  UNIT DOSE : 37.5 MG, FREQUENCY ; 1 , FREQUENCY TIME : 1 DAYS, THERAPY DURATIO
     Route: 048
     Dates: start: 201711, end: 201712
  25. SERTRALINE [Concomitant]
     Active Substance: SERTRALINE HYDROCHLORIDE
     Dosage: 50 MILLIGRAM DAILY;  UNIT DOSE : 50  MG, FREQUENCY ; 1 , FREQUENCY TIME : 1 DAYS
     Route: 048
     Dates: start: 201601
  26. SERTRALINE [Concomitant]
     Active Substance: SERTRALINE HYDROCHLORIDE
     Dosage: 75 MILLIGRAM DAILY;  UNIT DOSE : 75 MG, FREQUENCY ; 1 , FREQUENCY TIME : 1 DAYS, THERAPY DURATION :
     Route: 048
     Dates: start: 201612, end: 201702
  27. SERTRALINE [Concomitant]
     Active Substance: SERTRALINE HYDROCHLORIDE
     Dosage: 100 MILLIGRAM DAILY;  UNIT DOSE : 100  MG, FREQUENCY ; 1 , FREQUENCY TIME : 1 DAYS, THERAPY DURATION
     Route: 048
     Dates: start: 20160715, end: 201612
  28. VITAMIN D [Concomitant]
     Active Substance: VITAMIN D NOS
     Indication: Product used for unknown indication

REACTIONS (4)
  - Neutropenic sepsis [Recovered/Resolved]
  - Osteopenia [Not Recovered/Not Resolved]
  - Breast pain [Recovered/Resolved]
  - Coccydynia [Recovered/Resolved]

NARRATIVE: CASE EVENT DATE: 20150709
